FAERS Safety Report 12879703 (Version 1)
Quarter: 2016Q4

REPORT INFORMATION
  Report Type: Spontaneous
  Country: US (occurrence: US)
  Receive Date: 20161025
  Receipt Date: 20161025
  Transmission Date: 20170207
  Serious: No
  Sender: FDA-Public Use
  Company Number: US-TAKEDA-2016TUS019139

PATIENT
  Age: 65 Year
  Sex: Male

DRUGS (1)
  1. OSENI [Suspect]
     Active Substance: ALOGLIPTIN BENZOATE\PIOGLITAZONE HYDROCHLORIDE
     Indication: PRODUCT USED FOR UNKNOWN INDICATION
     Dosage: 25MG/30MG, UNK
     Route: 065
     Dates: start: 20161005

REACTIONS (7)
  - Hunger [Unknown]
  - Anxiety [Unknown]
  - Pruritus [Unknown]
  - Confusional state [Unknown]
  - Headache [Unknown]
  - Dizziness [Unknown]
  - Abdominal pain upper [Unknown]

NARRATIVE: CASE EVENT DATE: 201610
